FAERS Safety Report 9701163 (Version 1)
Quarter: 2013Q4

REPORT INFORMATION
  Report Type: Spontaneous
  Country: US (occurrence: US)
  Receive Date: 20131121
  Receipt Date: 20131121
  Transmission Date: 20140711
  Serious: No
  Sender: FDA-Public Use
  Company Number: US-GILEAD-2008-0015850

PATIENT
  Sex: Male
  Weight: 68.04 kg

DRUGS (5)
  1. LETAIRIS [Suspect]
     Indication: PULMONARY ARTERIAL HYPERTENSION
     Route: 048
     Dates: start: 20071010
  2. WARFARIN [Concomitant]
     Route: 048
  3. OXYGEN [Concomitant]
     Dosage: CONTINUOUS
     Route: 045
  4. HCTZ [Concomitant]
     Route: 048
  5. VISTARIL [Concomitant]
     Route: 048

REACTIONS (1)
  - Gout [Unknown]
